FAERS Safety Report 7431875-X (Version None)
Quarter: 2011Q2

REPORT INFORMATION
  Report Type: 
  Country: None (occurrence: None)
  Receive Date: 20110422
  Receipt Date: 20110419
  Transmission Date: 20111010
  Serious: Yes (Hospitalization)
  Sender: FDA-Public Use
  Company Number: GB-PFIZER INC-2011086031

PATIENT
  Age: 22 Year
  Sex: Female

DRUGS (3)
  1. MIFEGYNE [Suspect]
     Indication: ABORTION INDUCED
     Dosage: 200 MG, 1X/DAY
     Route: 048
  2. MISOPROSTOL [Suspect]
     Indication: ABORTION INDUCED
     Dosage: 800 UG, 2X/DAY
     Route: 067
  3. MIFEGYNE [Suspect]
     Dosage: 600 MG, 1X/DAY
     Route: 048

REACTIONS (6)
  - INCORRECT DOSE ADMINISTERED [None]
  - DRUG INEFFECTIVE FOR UNAPPROVED INDICATION [None]
  - ABORTION INDUCED [None]
  - INAPPROPRIATE SCHEDULE OF DRUG ADMINISTRATION [None]
  - INDUCED ABORTION FAILED [None]
  - INCORRECT ROUTE OF DRUG ADMINISTRATION [None]
